FAERS Safety Report 4373401-8 (Version None)
Quarter: 2004Q2

REPORT INFORMATION
  Report Type: 
  Country: None (occurrence: None)
  Receive Date: 20040607
  Receipt Date: 20030616
  Transmission Date: 20050107
  Serious: Yes (Other)
  Sender: FDA-Public Use
  Company Number: 340409

PATIENT
  Age: 14 Year
  Sex: Male

DRUGS (5)
  1. ACCUTANE [Suspect]
     Indication: ACNE
     Dosage: 40 MG DAILY ORAL
     Route: 048
     Dates: start: 20030509, end: 20030615
  2. CLARINEX (*DESLORATAINE/*LORATADINE*/PSEUDOEPHEDRINE HYDROCHLORIDE) [Concomitant]
  3. SINGULAIR [Concomitant]
  4. FLOVENT [Concomitant]
  5. NASOCORT (BUDESONIDE) [Concomitant]

REACTIONS (2)
  - ARTHRALGIA [None]
  - MUSCLE CRAMP [None]
